FAERS Safety Report 4618002-9 (Version None)
Quarter: 2005Q1

REPORT INFORMATION
  Report Type: 
  Country: None (occurrence: None)
  Receive Date: 20050314
  Receipt Date: 20040303
  Transmission Date: 20050727
  Serious: Yes (Death, Life-Threatening)
  Sender: FDA-Public Use
  Company Number: 2004-03821

PATIENT
  Age: 80 Year
  Sex: Male

DRUGS (1)
  1. IMMUCYST (BCG - IT (CONNAUGHT)), AVENTIS PASTEUR LTD., LOT NOT REPO, I [Suspect]
     Indication: BLADDER CANCER
     Dosage: (81.0 MICROG); B.IN., NR
     Dates: start: 20040425, end: 20041108

REACTIONS (8)
  - BLOOD CREATININE INCREASED [None]
  - BLOOD UREA INCREASED [None]
  - BOVINE TUBERCULOSIS [None]
  - HAEMODIALYSIS [None]
  - HEPATOCELLULAR DAMAGE [None]
  - LIVER DISORDER [None]
  - PYREXIA [None]
  - RENAL IMPAIRMENT [None]
